FAERS Safety Report 4865879-8 (Version None)
Quarter: 2005Q4

REPORT INFORMATION
  Report Type: 
  Country: None (occurrence: None)
  Receive Date: 20051219
  Receipt Date: 20051202
  Transmission Date: 20060501
  Serious: Yes (Hospitalization)
  Sender: FDA-Public Use
  Company Number: 2005-02318

PATIENT
  Age: 58 Year
  Sex: Male

DRUGS (10)
  1. VELCADE [Suspect]
     Indication: MULTIPLE MYELOMA
     Dosage: 2.80 MG, QD, INTRAVENOUS
     Route: 042
     Dates: start: 20050509, end: 20050829
  2. DOXIL [Suspect]
     Indication: MULTIPLE MYELOMA
     Dosage: 65.70 MG, QD, INTRAVENOUS
     Route: 042
     Dates: start: 20050512, end: 20050829
  3. PAMIDRONATE DISODIUM [Concomitant]
  4. TRAMSFER FACTOR (TRANSFER FACTOR) [Concomitant]
  5. FAMCICLOVIR (FAMICICLOVIR) [Concomitant]
  6. MYLANTA (MAGNESIUM HYDROXIDE, SIMETICONE, ALUMINIUM HYDROXIDE GEL, DRI [Concomitant]
  7. PARACETAMOL (PARACETAMOL) [Concomitant]
  8. PREDNISOLONE (PREDNISOLONE) [Concomitant]
  9. PROCHLORPERAZINE [Concomitant]
  10. AUMENTIN DUO FORTE (CLAVULANATE POTASSIUM, AMOXICILLIN TRIHYDRATE) [Concomitant]

REACTIONS (7)
  - ACUTE FEBRILE NEUTROPHILIC DERMATOSIS [None]
  - BLOOD CREATININE INCREASED [None]
  - HYPOKALAEMIA [None]
  - LEUKOPENIA [None]
  - NEUTROPENIA [None]
  - ORAL CANDIDIASIS [None]
  - PNEUMOCYSTIS JIROVECI PNEUMONIA [None]
